FAERS Safety Report 17329216 (Version 1)
Quarter: 2020Q1

REPORT INFORMATION
  Report Type: Spontaneous
  Country: US (occurrence: US)
  Receive Date: 20200127
  Receipt Date: 20200127
  Transmission Date: 20200409
  Serious: Yes (Other)
  Sender: FDA-Public Use
  Company Number: None

PATIENT
  Age: 51 Year
  Sex: Male
  Weight: 73.8 kg

DRUGS (1)
  1. OXYCODONE HCI 30 MG TAB RHOD [Suspect]
     Active Substance: OXYCODONE HYDROCHLORIDE
     Indication: PAIN
     Dosage: ?          QUANTITY:112 TABLET(S);?
     Route: 048

REACTIONS (8)
  - Gastric disorder [None]
  - Decreased appetite [None]
  - Product substitution issue [None]
  - Weight decreased [None]
  - Vomiting [None]
  - Headache [None]
  - Diarrhoea [None]
  - Muscle spasms [None]

NARRATIVE: CASE EVENT DATE: 20190604
